FAERS Safety Report 13200494 (Version 1)
Quarter: 2017Q1

REPORT INFORMATION
  Report Type: Spontaneous
  Country: US (occurrence: US)
  Receive Date: 20170208
  Receipt Date: 20170208
  Transmission Date: 20170428
  Serious: Yes (Hospitalization)
  Sender: FDA-Public Use
  Company Number: US-ROCHE-1890669

PATIENT
  Age: 12 Year
  Sex: Male
  Weight: 57.7 kg

DRUGS (1)
  1. XOLAIR [Suspect]
     Active Substance: OMALIZUMAB
     Indication: ASTHMA
     Route: 058
     Dates: start: 20161118

REACTIONS (5)
  - Rectal haemorrhage [Unknown]
  - Asthma [Unknown]
  - Pulmonary function test decreased [Unknown]
  - Weight decreased [Unknown]
  - Polyp [Unknown]

NARRATIVE: CASE EVENT DATE: 20170124
